FAERS Safety Report 9663109 (Version 1)
Quarter: 2013Q4

REPORT INFORMATION
  Report Type: Spontaneous
  Country: HN (occurrence: HN)
  Receive Date: 20131101
  Receipt Date: 20131101
  Transmission Date: 20140711
  Serious: Yes (Other)
  Sender: FDA-Public Use
  Company Number: PHHY2013HN121924

PATIENT
  Sex: 0

DRUGS (5)
  1. ACLASTA [Suspect]
     Dosage: UNK
     Route: 042
  2. CATAFLAM [Concomitant]
     Dosage: UNK UKN, UNK
     Dates: start: 20120410
  3. ALEVIAN DUO [Concomitant]
     Dosage: UNK UKN, UNK
     Dates: start: 20121012
  4. CEFTRIAXONA [Concomitant]
     Dosage: UNK
     Dates: start: 20120410
  5. DAFLON [Concomitant]
     Dosage: UNK
     Dates: start: 20120410

REACTIONS (2)
  - Cellulitis [Unknown]
  - Colitis [Unknown]
